FAERS Safety Report 17962663 (Version 1)
Quarter: 2020Q2

REPORT INFORMATION
  Report Type: Report from Study
  Country: NL (occurrence: NL)
  Receive Date: 20200630
  Receipt Date: 20200630
  Transmission Date: 20200714
  Serious: No
  Sender: FDA-Public Use
  Company Number: NL-TOLMAR, INC.-20NL021779

PATIENT
  Age: 68 Year
  Sex: Male

DRUGS (2)
  1. ELIGARD [Suspect]
     Active Substance: LEUPROLIDE ACETATE
     Indication: PROSTATE CANCER
     Dosage: 45 MG, 26 WEEKS
     Route: 058
     Dates: start: 20200618
  2. ELIGARD [Suspect]
     Active Substance: LEUPROLIDE ACETATE
     Dosage: 45 MG, 26 WEEKS
     Route: 058
     Dates: start: 20191218

REACTIONS (3)
  - Hot flush [Unknown]
  - Musculoskeletal pain [Recovering/Resolving]
  - Feeling cold [Unknown]

NARRATIVE: CASE EVENT DATE: 201912
